FAERS Safety Report 9968578 (Version 1)
Quarter: 2014Q1

REPORT INFORMATION
  Report Type: Report from Study
  Country: US (occurrence: US)
  Receive Date: 20140306
  Receipt Date: 20140306
  Transmission Date: 20141002
  Serious: No
  Sender: FDA-Public Use
  Company Number: US-ABBVIE-13P-163-1143428-00

PATIENT
  Sex: Female

DRUGS (2)
  1. HUMIRA [Suspect]
     Indication: RHEUMATOID ARTHRITIS
     Dates: start: 2008, end: 201306
  2. HUMIRA [Suspect]
     Dates: start: 201306

REACTIONS (2)
  - Inappropriate schedule of drug administration [Recovering/Resolving]
  - Pain [Recovering/Resolving]
